FAERS Safety Report 18915557 (Version 2)
Quarter: 2021Q1

REPORT INFORMATION
  Report Type: Spontaneous
  Country: RU (occurrence: RU)
  Receive Date: 20210219
  Receipt Date: 20210316
  Transmission Date: 20210420
  Serious: Yes (Hospitalization, Other)
  Sender: FDA-Public Use
  Company Number: RU-BAYER-2021-067317

PATIENT
  Age: 38 Year
  Sex: Female

DRUGS (1)
  1. YARINA [Suspect]
     Active Substance: DROSPIRENONE\ETHINYL ESTRADIOL
     Indication: CONTRACEPTION
     Dosage: UNK
     Route: 048
     Dates: start: 2016

REACTIONS (3)
  - COVID-19 pneumonia [Recovered/Resolved]
  - Pulmonary embolism [Recovered/Resolved]
  - Dyspnoea [Recovered/Resolved]

NARRATIVE: CASE EVENT DATE: 202101
